FAERS Safety Report 7015859-1 (Version None)
Quarter: 2010Q3

REPORT INFORMATION
  Report Type: 
  Country: None (occurrence: None)
  Receive Date: 20100927
  Receipt Date: 20091026
  Transmission Date: 20110219
  Serious: No
  Sender: FDA-Public Use
  Company Number: US-ASTRAZENECA-2009SE12126

PATIENT
  Age: 74 Year
  Sex: Female
  Weight: 117.9 kg

DRUGS (7)
  1. ARIMIDEX [Suspect]
     Indication: BREAST CANCER
     Route: 048
     Dates: start: 20090601
  2. ZOMETA [Concomitant]
  3. GLUCOTROL [Concomitant]
  4. INSULIN [Concomitant]
  5. DIGITEK [Concomitant]
  6. LASIX [Concomitant]
  7. METOPROLOL TARTRATE [Concomitant]

REACTIONS (4)
  - HOT FLUSH [None]
  - PALPITATIONS [None]
  - SINUSITIS [None]
  - WEIGHT INCREASED [None]
